FAERS Safety Report 14630163 (Version 3)
Quarter: 2018Q3

REPORT INFORMATION
  Report Type: Spontaneous
  Country: US (occurrence: US)
  Receive Date: 20180313
  Receipt Date: 20180903
  Transmission Date: 20181010
  Serious: No
  Sender: FDA-Public Use
  Company Number: US-PFIZER INC-2018102770

PATIENT
  Age: 68 Year
  Sex: Female
  Weight: 76 kg

DRUGS (4)
  1. IBRANCE [Suspect]
     Active Substance: PALBOCICLIB
     Indication: BREAST CANCER METASTATIC
     Dosage: 125 MG, CYCLIC (125 MG TABLETS FOR 21 DAYS AND OFF 7 DAYS)
     Route: 048
     Dates: end: 20180214
  2. IBRANCE [Suspect]
     Active Substance: PALBOCICLIB
     Dosage: 20 MG, CYCLIC (ONCE A DAY, 21 DAYS ON/7 DAYS OFF)
     Dates: start: 2018, end: 20180312
  3. FASLODEX [Concomitant]
     Active Substance: FULVESTRANT
     Dosage: UNK, MONTHLY (SHOTS)
     Route: 030
  4. XGEVA [Concomitant]
     Active Substance: DENOSUMAB
     Dosage: UNK, MONTHLY (SHOT)

REACTIONS (2)
  - Neoplasm progression [Unknown]
  - Radiation oesophagitis [Unknown]
